FAERS Safety Report 21859823 (Version 1)
Quarter: 2023Q1

REPORT INFORMATION
  Report Type: Spontaneous
  Country: US (occurrence: None)
  Receive Date: 20230112
  Receipt Date: 20230112
  Transmission Date: 20230417
  Serious: Yes (Hospitalization)
  Sender: FDA-Public Use
  Company Number: None

PATIENT
  Sex: Male

DRUGS (6)
  1. DROXIDOPA [Suspect]
     Active Substance: DROXIDOPA
     Indication: Parkinson^s disease
     Route: 048
     Dates: start: 20211204
  2. GOCOVRI CAP [Concomitant]
  3. METFORMIN TAB [Concomitant]
  4. NEURO-K-250 CAP T.D. [Concomitant]
  5. OMEPRAZOLE TAB [Concomitant]
  6. TAMSULOSIN [Concomitant]
     Active Substance: TAMSULOSIN

REACTIONS (1)
  - Hospitalisation [None]
